FAERS Safety Report 9845031 (Version 2)
Quarter: 2014Q1

REPORT INFORMATION
  Report Type: Spontaneous
  Country: JP (occurrence: JP)
  Receive Date: 20140127
  Receipt Date: 20140321
  Transmission Date: 20141002
  Serious: Yes (Life-Threatening, Other)
  Sender: FDA-Public Use
  Company Number: JP-ROCHE-1339032

PATIENT
  Age: 56 Year
  Sex: Female
  Weight: 46 kg

DRUGS (10)
  1. HERCEPTIN [Suspect]
     Indication: BREAST CANCER
     Route: 041
     Dates: start: 20131023, end: 20131023
  2. HERCEPTIN [Suspect]
     Indication: BREAST CANCER
     Route: 041
     Dates: start: 20131113
  3. PERJETA [Suspect]
     Indication: BREAST CANCER
     Route: 041
     Dates: start: 20131023, end: 20131023
  4. PERJETA [Suspect]
     Route: 041
     Dates: start: 20131113
  5. PICIBANIL [Suspect]
     Indication: BREAST CANCER
     Dosage: 5KE
     Route: 038
     Dates: start: 20131220
  6. ONETAXOTERE [Suspect]
     Indication: BREAST CANCER
     Dosage: DOSAGE IS UNCERTAIN.
     Route: 041
  7. REBAMIPIDE [Concomitant]
     Indication: PROPHYLAXIS
     Route: 048
     Dates: start: 20131101
  8. HYPEN [Concomitant]
     Indication: BREAST CANCER
     Route: 048
     Dates: start: 20130926
  9. HYSRON [Concomitant]
     Indication: BREAST CANCER
     Route: 048
     Dates: start: 20131112
  10. TAKEPRON [Concomitant]
     Indication: PROPHYLAXIS
     Route: 048
     Dates: start: 20131101

REACTIONS (2)
  - Interstitial lung disease [Recovered/Resolved]
  - Pneumothorax [Unknown]
